FAERS Safety Report 4961040-7 (Version None)
Quarter: 2006Q1

REPORT INFORMATION
  Report Type: 
  Country: None (occurrence: None)
  Receive Date: 20060328
  Receipt Date: 20060314
  Transmission Date: 20060701
  Serious: Yes (Hospitalization)
  Sender: FDA-Public Use
  Company Number: 221371

PATIENT
  Age: 53 Year
  Sex: Male
  Weight: 82.4 kg

DRUGS (8)
  1. AVASTIN [Suspect]
     Indication: COLON CANCER
     Dosage: 412.5 MG, Q2W, INTRAVENOUS
     Route: 042
     Dates: start: 20051108, end: 20060113
  2. OXALIPLATIN (OXALIPLATIN) [Suspect]
     Indication: COLON CANCER
     Dosage: 175 MG, Q2W, INTRAVENOUS
     Route: 042
     Dates: start: 20051108, end: 20051207
  3. OXALIPLATIN (OXALIPLATIN) [Suspect]
     Indication: COLON CANCER
     Dosage: 175 MG, Q2W, INTRAVENOUS
     Route: 042
     Dates: start: 20051221
  4. LEUCOVORIN CALCIUM [Suspect]
     Indication: COLON CANCER
     Dosage: 350 MG, Q2W, INTRAVENOUS
     Route: 042
     Dates: start: 20051108, end: 20051207
  5. LEUCOVORIN CALCIUM [Suspect]
     Indication: COLON CANCER
     Dosage: 350 MG, Q2W, INTRAVENOUS
     Route: 042
     Dates: start: 20051221
  6. FLUOROURACIL [Suspect]
     Indication: COLON CANCER
     Dosage: SEE IMAGE
     Route: 040
     Dates: start: 20051108, end: 20051207
  7. FLUOROURACIL [Suspect]
     Indication: COLON CANCER
     Dosage: SEE IMAGE
     Route: 040
     Dates: start: 20051108
  8. FLUOROURACIL [Suspect]
     Indication: COLON CANCER
     Dosage: SEE IMAGE
     Route: 040
     Dates: start: 20051221

REACTIONS (1)
  - DRUG HYPERSENSITIVITY [None]
